FAERS Safety Report 18114503 (Version 6)
Quarter: 2021Q1

REPORT INFORMATION
  Report Type: Report from Study
  Country: US (occurrence: US)
  Receive Date: 20200805
  Receipt Date: 20210215
  Transmission Date: 20210419
  Serious: Yes (Hospitalization, Other)
  Sender: FDA-Public Use
  Company Number: NVSC2020US213748

PATIENT
  Sex: Female

DRUGS (1)
  1. ENTRESTO [Suspect]
     Active Substance: SACUBITRIL\VALSARTAN
     Indication: CARDIAC FAILURE
     Dosage: UNK UNK, BID
     Route: 048
     Dates: start: 2019

REACTIONS (9)
  - Atrial fibrillation [Unknown]
  - Cardiac failure [Not Recovered/Not Resolved]
  - Illness [Unknown]
  - COVID-19 [Recovering/Resolving]
  - Diabetes mellitus [Unknown]
  - Panic attack [Recovering/Resolving]
  - Breast calcifications [Unknown]
  - Product dose omission issue [Unknown]
  - Anxiety [Recovering/Resolving]
